FAERS Safety Report 22297476 (Version 1)
Quarter: 2023Q2

REPORT INFORMATION
  Report Type: Spontaneous
  Country: NL (occurrence: NL)
  Receive Date: 20230509
  Receipt Date: 20230509
  Transmission Date: 20230722
  Serious: Yes (Hospitalization)
  Sender: FDA-Public Use
  Company Number: None

PATIENT
  Sex: Male
  Weight: 94 kg

DRUGS (18)
  1. TOCILIZUMAB [Suspect]
     Active Substance: TOCILIZUMAB
     Indication: Giant cell arteritis
     Dosage: 1X PER WEEK 162MG
     Route: 058
     Dates: start: 20230227, end: 20230309
  2. METOPROLOL [Concomitant]
     Active Substance: METOPROLOL
     Dosage: TABLET MET GEREGULEERDE AFGIFTE, 50 MG (MILLIGRAM)
  3. HYDROCHLOROTHIAZIDE [Concomitant]
     Active Substance: HYDROCHLOROTHIAZIDE
     Dosage: TABLET, 25 MG (MILLIGRAM)
  4. OXAZEPAM [Concomitant]
     Active Substance: OXAZEPAM
     Dosage: TABLET, 10 MG (MILLIGRAM)
  5. TIOTROPIUM [Concomitant]
     Active Substance: TIOTROPIUM
  6. OXYCODONE [Concomitant]
     Active Substance: OXYCODONE
     Dosage: CAPSULE, 5 MG (MILLIGRAM)
  7. FUROSEMIDE [Concomitant]
     Active Substance: FUROSEMIDE
     Dosage: TABLET, 20 MG (MILLIGRAM)
  8. FERROUS FUMARATE [Concomitant]
     Active Substance: FERROUS FUMARATE
     Dosage: TABLET, 200 MG (MILLIGRAM)
  9. CREON [Concomitant]
     Active Substance: PANCRELIPASE AMYLASE\PANCRELIPASE LIPASE\PANCRELIPASE PROTEASE
     Dosage: MAAGSAPRESISTENTE CAPSULE, 8000/10000/600 FE
  10. METFORMIN HYDROCHLORIDE [Concomitant]
     Active Substance: METFORMIN HYDROCHLORIDE
     Dosage: TABLET, 500 MG (MILLIGRAM)
  11. OMEPRAZOLE [Concomitant]
     Active Substance: OMEPRAZOLE
     Dosage: MAAGSAPRESISTENTE CAPSULE, 20 MG (MILLIGRAM)
  12. SIMVASTATIN [Concomitant]
     Active Substance: SIMVASTATIN
     Dosage: FILMOMHULDE TABLET, 40 MG (MILLIGRAM)
  13. POLYETHYLENE GLYCOLS [Concomitant]
     Active Substance: POLYETHYLENE GLYCOLS
     Dosage: POEDER VOOR DRANK
  14. INSULIN NOS [Concomitant]
     Active Substance: INSULIN NOS
     Dosage: INJECTIEVLOEISTOF, 200 EENHEDEN/ML (EENHEDEN PER MILLILITER)
  15. ASPIRIN [Concomitant]
     Active Substance: ASPIRIN
     Dosage: TABLET, 80 MG (MILLIGRAM)
  16. INSULIN ASPART [Concomitant]
     Active Substance: INSULIN ASPART
     Dosage: INJECTIEVLOEISTOF, 100 EENHEDEN/ML (EENHEDEN PER MILLILITER)
  17. PREDNISOLONE [Concomitant]
     Active Substance: PREDNISOLONE
     Dosage: TABLET, 5 MG (MILLIGRAM)
  18. OXYCODONE [Concomitant]
     Active Substance: OXYCODONE
     Dosage: TABLET MET GEREGULEERDE AFGIFTE, 10 MG (MILLIGRAM)

REACTIONS (1)
  - Colitis [Unknown]
